FAERS Safety Report 5375722-9 (Version None)
Quarter: 2007Q2

REPORT INFORMATION
  Report Type: 
  Country: None (occurrence: None)
  Receive Date: 20070628
  Receipt Date: 20070620
  Transmission Date: 20071010
  Serious: Yes (Hospitalization)
  Sender: FDA-Public Use
  Company Number: 2007BI011437

PATIENT
  Age: 43 Year
  Sex: Male

DRUGS (2)
  1. NATALIZUMAB [Suspect]
     Indication: MULTIPLE SCLEROSIS
     Dosage: 300  MG; QM; IV
     Route: 042
     Dates: start: 20070316
  2. AVONEX [Concomitant]

REACTIONS (7)
  - ASTHENIA [None]
  - CONFUSIONAL STATE [None]
  - FATIGUE [None]
  - HAEMATURIA [None]
  - MUSCLE SPASTICITY [None]
  - URINARY TRACT INFECTION [None]
  - VIRAL INFECTION [None]
